FAERS Safety Report 22634225 (Version 2)
Quarter: 2024Q2

REPORT INFORMATION
  Report Type: Spontaneous
  Country: US (occurrence: US)
  Receive Date: 20230623
  Receipt Date: 20240404
  Transmission Date: 20240716
  Serious: Yes (Other)
  Sender: FDA-Public Use
  Company Number: US-BAYER-2023A087265

PATIENT
  Age: 51 Year
  Sex: Male

DRUGS (3)
  1. KOGENATE FS [Suspect]
     Active Substance: ANTIHEMOPHILIC FACTOR, HUMAN RECOMBINANT
     Dosage: 1700 IU (+/-10%)
     Route: 042
  2. KOGENATE FS [Suspect]
     Active Substance: ANTIHEMOPHILIC FACTOR, HUMAN RECOMBINANT
     Dosage: 2 DF, TO TREAT KNEE BLEED
     Route: 042
     Dates: start: 202306, end: 202306
  3. KOGENATE FS [Suspect]
     Active Substance: ANTIHEMOPHILIC FACTOR, HUMAN RECOMBINANT
     Dosage: 2675 UNITS (+/-10%) 3 (THREE) TIMES WEEKLY
     Route: 042

REACTIONS (2)
  - Haemorrhage [Recovered/Resolved]
  - Insurance issue [None]

NARRATIVE: CASE EVENT DATE: 20230618
